FAERS Safety Report 5460968-1 (Version None)
Quarter: 2007Q3

REPORT INFORMATION
  Report Type: 
  Country: None (occurrence: None)
  Receive Date: 20070822
  Receipt Date: 20060706
  Transmission Date: 20080115
  Serious: Yes (Other)
  Sender: FDA-Public Use
  Company Number: 2006085198

PATIENT
  Age: 72 Year
  Sex: Male
  Weight: 88.5 kg

DRUGS (8)
  1. NORVASC [Suspect]
     Indication: HYPERTENSION
     Dosage: 2.5 MG (2.5 MG, 1 IN 1 D); 5 MG (5 MG); 10 MG (10 MG, 1 IN 1 D)
     Dates: start: 20060101, end: 20060201
  2. NORVASC [Suspect]
     Indication: HYPERTENSION
     Dosage: 2.5 MG (2.5 MG, 1 IN 1 D); 5 MG (5 MG); 10 MG (10 MG, 1 IN 1 D)
     Dates: start: 20060201, end: 20060301
  3. NORVASC [Suspect]
     Indication: HYPERTENSION
     Dosage: 2.5 MG (2.5 MG, 1 IN 1 D); 5 MG (5 MG); 10 MG (10 MG, 1 IN 1 D)
     Dates: start: 20060301
  4. LIPITOR [Suspect]
     Indication: DRUG USE FOR UNKNOWN INDICATION
     Dosage: 10 MG (10 MG, 1 IN 1 D)
  5. METOPROLOL TARTRATE [Concomitant]
  6. WARFARIN SODIUM [Concomitant]
  7. OLMESARTAN (OLMESARTAN) [Concomitant]
  8. BENICAR [Concomitant]

REACTIONS (3)
  - BLOOD PRESSURE INADEQUATELY CONTROLLED [None]
  - HIGH DENSITY LIPOPROTEIN DECREASED [None]
  - OEDEMA PERIPHERAL [None]
